FAERS Safety Report 8793250 (Version 1)
Quarter: 2012Q4

REPORT INFORMATION
  Report Type: Report from Study
  Country: US (occurrence: US)
  Receive Date: 20120917
  Receipt Date: 20120917
  Transmission Date: 20130627
  Serious: Yes (Hospitalization)
  Sender: FDA-Public Use
  Company Number: US-ROCHE-1120312

PATIENT
  Age: 64 Year
  Sex: Female

DRUGS (4)
  1. RANIBIZUMAB [Suspect]
     Indication: AGE-RELATED MACULAR DEGENERATION
     Dosage: Last injection 05/Sep/2012
     Route: 050
     Dates: start: 20100901
  2. BABY ASPIRIN [Concomitant]
  3. PLAVIX [Concomitant]
  4. COUMADIN [Concomitant]

REACTIONS (3)
  - Myocardial infarction [Unknown]
  - Arterial restenosis [Unknown]
  - Age-related macular degeneration [Unknown]
